FAERS Safety Report 18967768 (Version 1)
Quarter: 2021Q1

REPORT INFORMATION
  Report Type: Spontaneous
  Country: US (occurrence: US)
  Receive Date: 20210303
  Receipt Date: 20210303
  Transmission Date: 20210420
  Serious: Yes (Life-Threatening, Disabling)
  Sender: FDA-Public Use
  Company Number: None

PATIENT
  Age: 39 Year
  Sex: Female
  Weight: 64.35 kg

DRUGS (17)
  1. TRAZODONE [Concomitant]
     Active Substance: TRAZODONE HYDROCHLORIDE
  2. WHEAT GERM OIL [Concomitant]
     Active Substance: WHEAT GERM OIL
  3. FISH OIL [Concomitant]
     Active Substance: FISH OIL
  4. YOUR CURE CBD ? DELTA 8 VAPE TANK [Suspect]
     Active Substance: .DELTA.8-TETRAHYDROCANNABINOL\HERBALS
     Indication: PAIN
     Dosage: ?          QUANTITY:1 INHALATION(S);?
     Route: 055
     Dates: start: 20210203, end: 20210203
  5. YOUR CURE CBD ? DELTA 8 VAPE TANK [Suspect]
     Active Substance: .DELTA.8-TETRAHYDROCANNABINOL\HERBALS
     Indication: ANXIETY
     Dosage: ?          QUANTITY:1 INHALATION(S);?
     Route: 055
     Dates: start: 20210203, end: 20210203
  6. TIZANIDINE. [Concomitant]
     Active Substance: TIZANIDINE
  7. FLAXSEED [Concomitant]
     Active Substance: FLAX SEED
  8. BARRAGE OIL [Concomitant]
  9. COLLAGEN TYPE ONE AND THREE [Concomitant]
  10. PROTONIX [Concomitant]
     Active Substance: PANTOPRAZOLE SODIUM
  11. COLLAGEN OVER THE COUNTER [Concomitant]
  12. MULTIVITAMIN [Concomitant]
     Active Substance: VITAMINS
  13. TURMERIC [Concomitant]
     Active Substance: HERBALS\TURMERIC
  14. CBD OIL [Concomitant]
     Active Substance: CANNABIDIOL\HERBALS
  15. ADDERALL [Concomitant]
     Active Substance: AMPHETAMINE ASPARTATE\AMPHETAMINE SULFATE\DEXTROAMPHETAMINE SACCHARATE\DEXTROAMPHETAMINE SULFATE
  16. GABAPENTIN 300 MG [Concomitant]
     Active Substance: GABAPENTIN
  17. CLONAZEPAM. [Concomitant]
     Active Substance: CLONAZEPAM

REACTIONS (8)
  - Vomiting [None]
  - Serotonin syndrome [None]
  - Visual impairment [None]
  - Dyspnoea [None]
  - Mydriasis [None]
  - Product contamination chemical [None]
  - Myoclonus [None]
  - Respiratory tract irritation [None]

NARRATIVE: CASE EVENT DATE: 20210203
